FAERS Safety Report 10028820 (Version 1)
Quarter: 2014Q1

REPORT INFORMATION
  Report Type: Report from Study
  Country: ZA (occurrence: ZA)
  Receive Date: 20140321
  Receipt Date: 20140321
  Transmission Date: 20141002
  Serious: Yes (Other)
  Sender: FDA-Public Use
  Company Number: PHHY2014ZA033824

PATIENT
  Sex: Female

DRUGS (2)
  1. ACLASTA [Suspect]
     Dosage: 5 MG/ 100 ML
     Route: 042
     Dates: start: 201302
  2. CALCIUM [Concomitant]
     Dosage: UNK UKN, UNK

REACTIONS (1)
  - Intervertebral disc displacement [Unknown]
